FAERS Safety Report 8196375 (Version 2)
Quarter: 2012Q4

REPORT INFORMATION
  Report Type: 
  Country: US (occurrence: US)
  Receive Date: 20111024
  Receipt Date: 20121025
  Transmission Date: 20130627
  Serious: No
  Sender: FDA-Public Use
  Company Number: US-ABBOTT-10P-163-0685935-00

PATIENT
  Sex: Female
  Weight: 113.5 kg

DRUGS (8)
  1. LUPRON DEPOT [Suspect]
     Indication: VAGINAL HAEMORRHAGE
     Dosage: 6 injections total
     Dates: start: 20101102, end: 2011
  2. SPIRONOLACTONE [Concomitant]
     Indication: PRODUCT USED FOR UNKNOWN INDICATION
     Dates: start: 2007
  3. POTASSIUM [Concomitant]
     Indication: MINERAL SUPPLEMENTATION
  4. GLYBURIDE [Concomitant]
     Indication: DIABETES MELLITUS
  5. UNKNOWN THYROID MEDICATION [Concomitant]
     Indication: THYROID DISORDER
  6. ZETIA [Concomitant]
     Indication: BLOOD CHOLESTEROL INCREASED
  7. WARFARIN [Concomitant]
     Indication: THROMBOSIS PROPHYLAXIS
     Dates: start: 200802
  8. ASPIRIN [Concomitant]
     Indication: PROPHYLAXIS
     Dosage: Coated

REACTIONS (2)
  - Vaginal haemorrhage [Recovered/Resolved]
  - Vaginal haemorrhage [Recovering/Resolving]
